FAERS Safety Report 7311039-0 (Version None)
Quarter: 2011Q1

REPORT INFORMATION
  Report Type: 
  Country: None (occurrence: None)
  Receive Date: 20110224
  Receipt Date: 20110210
  Transmission Date: 20110831
  Serious: Yes (Hospitalization, Other)
  Sender: FDA-Public Use
  Company Number: BR-ROCHE-701792

PATIENT
  Age: 18 Year
  Sex: Male

DRUGS (1)
  1. ISOTRETINOIN [Suspect]
     Indication: ACNE
     Route: 048

REACTIONS (7)
  - MENTAL DISORDER [None]
  - PYODERMA GANGRENOSUM [None]
  - CROHN'S DISEASE [None]
  - GROIN ABSCESS [None]
  - EXCESSIVE GRANULATION TISSUE [None]
  - SKIN MASS [None]
  - STEVENS-JOHNSON SYNDROME [None]
